FAERS Safety Report 26170071 (Version 1)
Quarter: 2025Q4

REPORT INFORMATION
  Report Type: Spontaneous
  Country: US (occurrence: US)
  Receive Date: 20251217
  Receipt Date: 20251217
  Transmission Date: 20260118
  Serious: Yes (Death, Other)
  Sender: MALLINCKRODT
  Company Number: US-MALLINCKRODT-MNK202507967

PATIENT
  Age: 29 Week
  Sex: Male

DRUGS (3)
  1. NITRIC OXIDE [Suspect]
     Active Substance: NITRIC OXIDE
     Indication: Pulmonary hypertension
     Dosage: UNKNOWN
     Route: 055
  2. EPINEPHRINE [Concomitant]
     Active Substance: EPINEPHRINE
     Dosage: UNKNOWN
  3. MILRINONE [Concomitant]
     Active Substance: MILRINONE
     Dosage: UNKNOWN

REACTIONS (5)
  - Death [Fatal]
  - Respiratory failure [Unknown]
  - Hyperbilirubinaemia [Unknown]
  - Optic disc disorder [Unknown]
  - Product use issue [Unknown]
